FAERS Safety Report 9281279 (Version 1)
Quarter: 2013Q2

REPORT INFORMATION
  Report Type: Spontaneous
  Country: US (occurrence: None)
  Receive Date: 20130508
  Receipt Date: 20130508
  Transmission Date: 20140414
  Serious: No
  Sender: FDA-Public Use
  Company Number: None

PATIENT
  Age: 19 Year
  Sex: Male

DRUGS (1)
  1. CHLOROPROMAZINE [Suspect]
     Route: 048

REACTIONS (1)
  - Lethargy [None]
